FAERS Safety Report 8926680 (Version 6)
Quarter: 2016Q2

REPORT INFORMATION
  Report Type: Spontaneous
  Country: US (occurrence: US)
  Receive Date: 20121127
  Receipt Date: 20160421
  Transmission Date: 20160815
  Serious: No
  Sender: FDA-Public Use
  Company Number: US-PFIZER INC-2012296906

PATIENT
  Age: 62 Year
  Sex: Female
  Weight: 43.99 kg

DRUGS (10)
  1. LYRICA [Suspect]
     Active Substance: PREGABALIN
     Dosage: 50MG TO 75MG 2-3 TIMES DAY, AS NEEDED
  2. LYRICA [Suspect]
     Active Substance: PREGABALIN
     Indication: VULVOVAGINAL PAIN
     Dosage: 50MG TO 75MG 2-3 TIMES DAY, AS NEEDED
  3. MIRALAX [Concomitant]
     Active Substance: POLYETHYLENE GLYCOL 3350
     Indication: LAXATIVE SUPPORTIVE CARE
     Dosage: UNK, 2X/DAY
  4. LYRICA [Suspect]
     Active Substance: PREGABALIN
     Indication: NERVE INJURY
     Dosage: 50MG TO 75MG 2-3 TIMES DAY, AS NEEDED
  5. PROBIOTIC 10 [Concomitant]
     Dosage: 2 DF, 1X/DAY
  6. FLEXERIL [Concomitant]
     Active Substance: CYCLOBENZAPRINE HYDROCHLORIDE
     Dosage: UNK
  7. MAGNESIUM [Concomitant]
     Active Substance: MAGNESIUM
     Dosage: 400 MG, UNK
  8. KLONOPIN [Concomitant]
     Active Substance: CLONAZEPAM
     Indication: ANXIETY
     Dosage: 1 MG, 3X/DAY
  9. KLONOPIN [Concomitant]
     Active Substance: CLONAZEPAM
     Indication: VULVOVAGINAL PAIN
  10. SENNA [Concomitant]
     Active Substance: SENNA LEAF\SENNOSIDES\SENNOSIDES A AND B
     Dosage: 8.5 MG, UNK

REACTIONS (7)
  - Sinusitis [Unknown]
  - Somnolence [Recovering/Resolving]
  - Weight increased [Recovering/Resolving]
  - Product use issue [Unknown]
  - Nasopharyngitis [Unknown]
  - Memory impairment [Not Recovered/Not Resolved]
  - Lethargy [Not Recovered/Not Resolved]
